FAERS Safety Report 19736941 (Version 1)
Quarter: 2021Q3

REPORT INFORMATION
  Report Type: Spontaneous
  Country: US (occurrence: US)
  Receive Date: 20210824
  Receipt Date: 20210824
  Transmission Date: 20211014
  Serious: No
  Sender: FDA-Public Use
  Company Number: ALC2020US007890

PATIENT

DRUGS (2)
  1. SYSTANE LUBRICANT [Suspect]
     Active Substance: POLYETHYLENE GLYCOL 400\PROPYLENE GLYCOL
     Indication: PRODUCT USED FOR UNKNOWN INDICATION
     Route: 065
  2. ZADITOR [Suspect]
     Active Substance: KETOTIFEN FUMARATE
     Indication: PRODUCT USED FOR UNKNOWN INDICATION
     Dosage: 1 DROP IN EACH EYE
     Route: 065
     Dates: start: 20200929, end: 20200929

REACTIONS (4)
  - Eyelids pruritus [Recovered/Resolved]
  - Eye pain [Recovered/Resolved]
  - Eyelid oedema [Recovered/Resolved]
  - Eye irritation [Recovered/Resolved]

NARRATIVE: CASE EVENT DATE: 20200930
